FAERS Safety Report 4600626-6 (Version None)
Quarter: 2005Q1

REPORT INFORMATION
  Report Type: 
  Country: None (occurrence: None)
  Receive Date: 20050304
  Receipt Date: 20050222
  Transmission Date: 20050727
  Serious: Yes (Hospitalization)
  Sender: FDA-Public Use
  Company Number: 2005035597

PATIENT
  Age: 65 Year
  Sex: Female
  Weight: 90 kg

DRUGS (12)
  1. CELEBREX [Suspect]
     Indication: ARTHROPATHY
     Dosage: 200 MG (1 D), ORAL
     Route: 048
     Dates: end: 20040831
  2. FENOFIBRATE [Suspect]
     Indication: HYPERLIPIDAEMIA
     Dosage: 160 MG (1 D), ORAL
     Route: 048
     Dates: start: 20040823, end: 20040828
  3. ALL OTHER THERAPEUTIC PRODUCTS (ALL OTHER THERAPEUTIC PRODUCTS) [Suspect]
     Indication: ARTHROPATHY
     Dosage: 4 DOSE FORMS (1 D), ORAL
     Route: 048
     Dates: start: 20040823, end: 20040828
  4. LANSOPRAZOLE [Suspect]
     Indication: ILL-DEFINED DISORDER
     Dosage: 15 MG (1 D), ORAL
     Route: 048
     Dates: end: 20040831
  5. CYAMEMAZINE (CYAMEMAZINE) [Suspect]
     Indication: ILL-DEFINED DISORDER
     Dosage: 10 DROP (1 D), ORAL
     Route: 048
     Dates: end: 20040831
  6. PRAVASTATIN [Suspect]
     Indication: HYPERLIPIDAEMIA
     Dosage: 20 MG (20 MG, 1 D), ORAL
     Route: 048
     Dates: end: 20040823
  7. NITROGLYCERIN [Concomitant]
  8. SPIRONOLACTONE [Concomitant]
  9. DIGOXIN [Concomitant]
  10. ACARBOSE (ACARBOSE) [Concomitant]
  11. ALL OTHER THERAPEUTIC PRODUCTS (ALL OTHER THERAPEUTIC PRODUCTS) [Concomitant]
  12. METFORMIN EMBONATE (METFORMIN EMBONATE) [Concomitant]

REACTIONS (2)
  - PHOTOSENSITIVITY REACTION [None]
  - TOXIC SKIN ERUPTION [None]
